FAERS Safety Report 10083254 (Version 2)
Quarter: 2014Q2

REPORT INFORMATION
  Report Type: Report from Study
  Country: JP (occurrence: JP)
  Receive Date: 20140417
  Receipt Date: 20140616
  Transmission Date: 20141212
  Serious: Yes (Death)
  Sender: FDA-Public Use
  Company Number: JP-ROCHE-1380544

PATIENT
  Age: 77 Year
  Sex: Male
  Weight: 57 kg

DRUGS (13)
  1. COVERSYL [Concomitant]
     Route: 048
     Dates: end: 20120512
  2. LASIX [Concomitant]
     Route: 048
     Dates: end: 20120512
  3. ALDACTONE A [Concomitant]
     Route: 048
     Dates: end: 20120512
  4. AMIYU [Concomitant]
     Route: 048
     Dates: end: 20120512
  5. BAYASPIRIN [Concomitant]
     Route: 048
     Dates: end: 20120512
  6. HARNAL D [Concomitant]
     Route: 048
     Dates: end: 20120512
  7. SODIUM BICARBONATE [Concomitant]
     Route: 048
     Dates: end: 20120512
  8. MUCODYNE [Concomitant]
     Route: 048
     Dates: end: 20120512
  9. SERMION [Concomitant]
     Route: 048
     Dates: end: 20120512
  10. METHOXY POLYETHYLENE GLYCOL-EPOETIN BETA [Suspect]
     Indication: NEPHROGENIC ANAEMIA
     Route: 042
     Dates: start: 20120502, end: 20120502
  11. D-ALFA [Concomitant]
     Route: 048
     Dates: end: 20120512
  12. NORVASC [Concomitant]
     Route: 048
     Dates: end: 20120512
  13. DIOVAN [Concomitant]
     Route: 048
     Dates: end: 20120512

REACTIONS (1)
  - Acute myocardial infarction [Fatal]
